FAERS Safety Report 8595935-2 (Version None)
Quarter: 2012Q3

REPORT INFORMATION
  Report Type: 
  Country: None (occurrence: None)
  Receive Date: 20120815
  Receipt Date: 19911001
  Transmission Date: 20120928
  Serious: Yes (Hospitalization)
  Sender: FDA-Public Use
  Company Number: US-ROCHE-1100549

PATIENT
  Age: 64 Year
  Sex: Male

DRUGS (5)
  1. ACTIVASE [Suspect]
     Indication: ANGINA UNSTABLE
  2. PHENERGAN HCL [Concomitant]
  3. HEPARIN [Concomitant]
     Route: 042
  4. NITROGLYCERIN [Concomitant]
     Route: 042
  5. MORPHINE [Concomitant]

REACTIONS (3)
  - BRADYCARDIA [None]
  - VENTRICULAR EXTRASYSTOLES [None]
  - PAIN [None]
